FAERS Safety Report 7515155-X (Version None)
Quarter: 2011Q2

REPORT INFORMATION
  Report Type: 
  Country: None (occurrence: None)
  Receive Date: 20110601
  Receipt Date: 20100518
  Transmission Date: 20111010
  Serious: No
  Sender: FDA-Public Use
  Company Number: US-PFIZER INC-2010062392

PATIENT
  Sex: Female
  Weight: 61.2 kg

DRUGS (5)
  1. CHANTIX [Suspect]
     Indication: EX-TOBACCO USER
     Dosage: 0.5 MG, 2X/DAY
     Route: 048
     Dates: start: 20100504
  2. NEURONTIN [Concomitant]
     Dosage: UNK, 4X/DAY
  3. REMERON [Concomitant]
     Dosage: UNK
  4. KLONOPIN [Concomitant]
     Dosage: IN NIGHT
  5. LORCET-HD [Concomitant]
     Indication: PAIN IN EXTREMITY
     Dosage: UNK, 4X/DAY

REACTIONS (2)
  - DRUG INEFFECTIVE [None]
  - NAUSEA [None]
